FAERS Safety Report 7921159-5 (Version None)
Quarter: 2011Q4

REPORT INFORMATION
  Report Type: 
  Country: None (occurrence: None)
  Receive Date: 20111117
  Receipt Date: 20111114
  Transmission Date: 20120403
  Serious: Yes (Hospitalization, Other)
  Sender: FDA-Public Use
  Company Number: JP-PFIZER INC-2011258432

PATIENT
  Age: 86 Year
  Sex: Female

DRUGS (4)
  1. LYRICA [Suspect]
     Indication: ANALGESIC THERAPY
  2. LYRICA [Suspect]
     Indication: PAIN
     Dosage: 75 MG, 2X/DAY
     Route: 048
     Dates: start: 20110328, end: 20110410
  3. LOSARTAN POTASSIUM [Concomitant]
     Dosage: UNK
  4. LASIX [Concomitant]
     Dosage: UNK

REACTIONS (1)
  - CARDIAC FAILURE [None]
